FAERS Safety Report 9774176 (Version 1)
Quarter: 2013Q4

REPORT INFORMATION
  Report Type: Report from Study
  Country: CO (occurrence: CO)
  Receive Date: 20131220
  Receipt Date: 20131220
  Transmission Date: 20140711
  Serious: Yes (Hospitalization)
  Sender: FDA-Public Use
  Company Number: CO-ROCHE-1320760

PATIENT
  Age: 62 Year
  Sex: Male

DRUGS (1)
  1. VALIXA [Suspect]
     Indication: HEART TRANSPLANT
     Route: 048
     Dates: start: 20130411

REACTIONS (1)
  - Colitis [Recovering/Resolving]
